FAERS Safety Report 16874271 (Version 1)
Quarter: 2019Q4

REPORT INFORMATION
  Report Type: Spontaneous
  Country: JP (occurrence: JP)
  Receive Date: 20191001
  Receipt Date: 20191001
  Transmission Date: 20200122
  Serious: Yes (Death, Other)
  Sender: FDA-Public Use
  Company Number: JP-CORDEN PHARMA LATINA S.P.A.-JP-2019COR000088

PATIENT

DRUGS (2)
  1. PLATINUM [Suspect]
     Active Substance: PLATINUM
     Indication: SMALL CELL LUNG CANCER
     Dosage: UNK
  2. ETOPOSIDE. [Suspect]
     Active Substance: ETOPOSIDE
     Indication: SMALL CELL LUNG CANCER
     Dosage: 80 MG/M2, (80-100)

REACTIONS (1)
  - Pneumonitis [Fatal]
